FAERS Safety Report 5799977-1 (Version None)
Quarter: 2008Q3

REPORT INFORMATION
  Report Type: 
  Country: None (occurrence: None)
  Receive Date: 20080703
  Receipt Date: 20080619
  Transmission Date: 20090109
  Serious: Yes (Hospitalization)
  Sender: FDA-Public Use
  Company Number: FR-ASTRAZENECA-2008SE01876

PATIENT
  Age: 77 Year
  Sex: Male

DRUGS (8)
  1. KENZEN [Suspect]
     Indication: HYPERTENSION
     Route: 048
     Dates: end: 20080101
  2. AUGMENTIN '125' [Suspect]
     Indication: BRONCHITIS
     Route: 048
     Dates: start: 20071201, end: 20080101
  3. FLUDEX [Suspect]
     Indication: HYPERTENSION
     Route: 048
     Dates: end: 20080101
  4. DETENSIEL [Concomitant]
     Indication: DRUG USE FOR UNKNOWN INDICATION
     Route: 048
  5. AMLOR [Concomitant]
     Indication: DRUG USE FOR UNKNOWN INDICATION
     Route: 048
  6. ALLOPURINOL [Concomitant]
     Indication: DRUG USE FOR UNKNOWN INDICATION
     Route: 048
  7. OMIX [Concomitant]
     Indication: BENIGN PROSTATIC HYPERPLASIA
     Route: 048
  8. ASPIRIN [Concomitant]
     Indication: DRUG USE FOR UNKNOWN INDICATION
     Route: 048

REACTIONS (2)
  - ABDOMINAL PAIN UPPER [None]
  - JAUNDICE CHOLESTATIC [None]
